FAERS Safety Report 10549114 (Version 1)
Quarter: 2014Q4

REPORT INFORMATION
  Report Type: Spontaneous
  Country: US (occurrence: None)
  Receive Date: 20141016
  Receipt Date: 20141016
  Transmission Date: 20150529
  Serious: No
  Sender: FDA-Public Use
  Company Number: CABO-14004368

PATIENT
  Age: 53 Year
  Sex: Male
  Weight: 82.7 kg

DRUGS (1)
  1. COMETRIQ [Suspect]
     Active Substance: CABOZANTINIB S-MALATE
     Indication: PROSTATE CANCER
     Route: 048
     Dates: start: 20140531, end: 20140821

REACTIONS (6)
  - Rhinorrhoea [None]
  - Decreased appetite [None]
  - Mood swings [None]
  - Swelling [None]
  - Off label use [None]
  - Respiratory tract congestion [None]

NARRATIVE: CASE EVENT DATE: 201406
